FAERS Safety Report 12741350 (Version 2)
Quarter: 2016Q3

REPORT INFORMATION
  Report Type: Spontaneous
  Country: US (occurrence: US)
  Receive Date: 20160914
  Receipt Date: 20160916
  Transmission Date: 20161109
  Serious: No
  Sender: FDA-Public Use
  Company Number: US-PFIZER INC-2016427375

PATIENT
  Age: 30 Year
  Sex: Male
  Weight: 127 kg

DRUGS (5)
  1. GENOTROPIN MQ [Suspect]
     Active Substance: SOMATROPIN
     Indication: HYPOPITUITARISM
     Dosage: UNK, 1X/DAY
     Dates: start: 201505, end: 20150901
  2. LEVOTHYROXINE. [Concomitant]
     Active Substance: LEVOTHYROXINE
     Indication: HYPOPITUITARISM
     Dosage: 250 UG, 1X/DAY
     Route: 048
     Dates: start: 19880320
  3. PREDNISONE. [Concomitant]
     Active Substance: PREDNISONE
     Indication: HYPOPITUITARISM
     Dosage: 5 MG, 1X/DAY
     Route: 048
     Dates: start: 200606
  4. DEPO-TESTOSTERONE [Concomitant]
     Active Substance: TESTOSTERONE CYPIONATE
     Indication: HYPOPITUITARISM
     Dosage: 1 ML, CYCLIC (EVERY 10 DAYS)
     Route: 030
     Dates: start: 19980815
  5. DDAVP [Concomitant]
     Active Substance: DESMOPRESSIN ACETATE
     Indication: DIABETES INSIPIDUS
     Dosage: 0.1 MG, 2X/DAY
     Route: 048
     Dates: start: 19880320

REACTIONS (2)
  - Arthralgia [Recovered/Resolved]
  - Bone pain [Recovered/Resolved]

NARRATIVE: CASE EVENT DATE: 2015
